FAERS Safety Report 13424305 (Version 1)
Quarter: 2017Q2

REPORT INFORMATION
  Report Type: Spontaneous
  Country: US (occurrence: US)
  Receive Date: 20170410
  Receipt Date: 20170410
  Transmission Date: 20170830
  Serious: Yes (Life-Threatening, Hospitalization, Other)
  Sender: FDA-Public Use
  Company Number: US-TEVA-757151USA

PATIENT
  Age: 32 Year
  Sex: Male

DRUGS (1)
  1. BUPROPION EXTENDED RELEASE [Suspect]
     Active Substance: BUPROPION
     Indication: INTENTIONAL OVERDOSE
     Dosage: 30 TO 90 EXTENDED RELEASE TABLETS OF 300MG
     Route: 065

REACTIONS (3)
  - Status epilepticus [Recovering/Resolving]
  - Intentional overdose [Recovering/Resolving]
  - Pneumonia aspiration [Recovering/Resolving]
